FAERS Safety Report 22362390 (Version 1)
Quarter: 2023Q2

REPORT INFORMATION
  Report Type: Spontaneous
  Country: US (occurrence: US)
  Receive Date: 20230524
  Receipt Date: 20230524
  Transmission Date: 20230721
  Serious: Yes (Hospitalization)
  Sender: FDA-Public Use
  Company Number: US-SPECTRUM PHARMACEUTICALS, INC.-23-R-US-00017

PATIENT
  Age: 71 Year
  Sex: Male

DRUGS (3)
  1. ROLVEDON [Suspect]
     Active Substance: EFLAPEGRASTIM-XNST
     Indication: Colony stimulating factor therapy
     Dosage: 13.2 MILLIGRAM, SINGLE
     Route: 058
     Dates: start: 20230418, end: 20230418
  2. TAXOTERE [Concomitant]
     Active Substance: DOCETAXEL
     Indication: Prostate cancer
     Dosage: UNK, SINGLE
     Dates: start: 20230417, end: 20230417
  3. TAXOTERE [Concomitant]
     Active Substance: DOCETAXEL
     Dosage: UNK, SINGLE
     Dates: start: 202303, end: 202303

REACTIONS (2)
  - Device related infection [Recovering/Resolving]
  - Bone pain [Recovering/Resolving]

NARRATIVE: CASE EVENT DATE: 20230401
